FAERS Safety Report 4726916-4 (Version None)
Quarter: 2005Q3

REPORT INFORMATION
  Report Type: 
  Country: None (occurrence: None)
  Receive Date: 20050725
  Receipt Date: 20050725
  Transmission Date: 20060218
  Serious: Yes (Disabling)
  Sender: FDA-Public Use
  Company Number: None

PATIENT
  Age: 66 Year
  Sex: Female
  Weight: 86.1834 kg

DRUGS (2)
  1. COZAAR [Suspect]
     Indication: ESSENTIAL HYPERTENSION
     Dosage: Q.I.D.  TABLET ORAL
     Route: 048
  2. BENICAR [Suspect]
     Indication: ESSENTIAL HYPERTENSION
     Dosage: Q.I.D.  TABLET ORAL
     Route: 048

REACTIONS (2)
  - AGEUSIA [None]
  - ANOSMIA [None]
